FAERS Safety Report 5351924-2 (Version None)
Quarter: 2007Q2

REPORT INFORMATION
  Report Type: 
  Country: None (occurrence: None)
  Receive Date: 20070521
  Receipt Date: 20070309
  Transmission Date: 20071010
  Serious: No
  Sender: FDA-Public Use
  Company Number: WAES 0703USA01488

PATIENT
  Age: 71 Year
  Sex: Female

DRUGS (7)
  1. JANUVIA [Suspect]
     Indication: BLOOD GLUCOSE ABNORMAL
     Dosage: 100 MG/DAILY/PO
     Route: 048
     Dates: start: 20070307
  2. AMARYL [Concomitant]
  3. CARDURA [Concomitant]
  4. COUMADIN [Concomitant]
  5. LASIX [Concomitant]
  6. NORVASC [Concomitant]
  7. [THERAPY UNSPECIFIED] [Concomitant]

REACTIONS (1)
  - BLOOD GLUCOSE INCREASED [None]
